FAERS Safety Report 14239364 (Version 2)
Quarter: 2018Q1

REPORT INFORMATION
  Report Type: Spontaneous
  Country: BE (occurrence: BE)
  Receive Date: 20171130
  Receipt Date: 20180122
  Transmission Date: 20180508
  Serious: Yes (Other)
  Sender: FDA-Public Use
  Company Number: BE-009507513-1711BEL010797

PATIENT
  Sex: Male
  Weight: 79.7 kg

DRUGS (3)
  1. KEYTRUDA [Suspect]
     Active Substance: PEMBROLIZUMAB
     Dosage: 160 MG, Q3W
     Route: 042
     Dates: start: 20170901, end: 20171103
  2. SEDACID [Concomitant]
     Dosage: 20 MG, QD
     Route: 048
  3. COVERAM [Concomitant]
     Active Substance: AMLODIPINE\PERINDOPRIL
     Dosage: 1 DF (5/5 MG), QD
     Route: 048

REACTIONS (2)
  - Paraneoplastic syndrome [Unknown]
  - Deep vein thrombosis [Not Recovered/Not Resolved]
